FAERS Safety Report 23661833 (Version 1)
Quarter: 2024Q1

REPORT INFORMATION
  Report Type: Spontaneous
  Country: JP (occurrence: JP)
  Receive Date: 20240322
  Receipt Date: 20240322
  Transmission Date: 20240410
  Serious: Yes (Other)
  Sender: FDA-Public Use
  Company Number: JP-TEVA-2022-JP-2072172

PATIENT
  Sex: Male

DRUGS (4)
  1. BEZAFIBRATE [Suspect]
     Active Substance: BEZAFIBRATE
     Indication: Primary biliary cholangitis
     Route: 048
  2. BEZAFIBRATE [Suspect]
     Active Substance: BEZAFIBRATE
     Indication: Primary biliary cholangitis
     Route: 048
  3. URSODIOL [Suspect]
     Active Substance: URSODIOL
     Indication: Primary biliary cholangitis
     Route: 048
  4. PEMAFIBRATE [Concomitant]
     Active Substance: PEMAFIBRATE
     Indication: Primary biliary cholangitis
     Route: 065

REACTIONS (3)
  - Hepatic cirrhosis [Unknown]
  - Chronic kidney disease [Recovering/Resolving]
  - Off label use [Unknown]
